FAERS Safety Report 9980416 (Version 2)
Quarter: 2014Q2

REPORT INFORMATION
  Report Type: Spontaneous
  Country: US (occurrence: US)
  Receive Date: 20140307
  Receipt Date: 20140428
  Transmission Date: 20141212
  Serious: Yes (Hospitalization)
  Sender: FDA-Public Use
  Company Number: US-BEH-2014040899

PATIENT
  Sex: Female

DRUGS (2)
  1. PRIVIGEN [Suspect]
     Indication: HYPOGAMMAGLOBULINAEMIA
     Route: 042
  2. PRIVIGEN [Suspect]
     Indication: INFECTION
     Route: 042

REACTIONS (1)
  - Investigation [Recovered/Resolved]
